FAERS Safety Report 7644357-7 (Version None)
Quarter: 2011Q3

REPORT INFORMATION
  Report Type: 
  Country: None (occurrence: None)
  Receive Date: 20110729
  Receipt Date: 20110718
  Transmission Date: 20111222
  Serious: Yes (Hospitalization, Other)
  Sender: FDA-Public Use
  Company Number: US-ELI_LILLY_AND_COMPANY-US201105007111

PATIENT
  Age: 75 Year
  Sex: Female

DRUGS (3)
  1. NEXIUM [Concomitant]
     Dosage: UNK
  2. LANTUS [Concomitant]
     Dosage: UNK
  3. HUMALOG [Suspect]
     Indication: DIABETES MELLITUS
     Dosage: 15 U, TID
     Dates: start: 20010101

REACTIONS (5)
  - SEPSIS [None]
  - PROCEDURAL COMPLICATION [None]
  - DIABETES MELLITUS INADEQUATE CONTROL [None]
  - OOPHORECTOMY [None]
  - AMNESIA [None]
